FAERS Safety Report 10592282 (Version 1)
Quarter: 2014Q4

REPORT INFORMATION
  Report Type: Spontaneous
  Country: IT (occurrence: None)
  Receive Date: 20141117
  Receipt Date: 20141117
  Transmission Date: 20150529
  Serious: Yes (Hospitalization)
  Sender: FDA-Public Use
  Company Number: FK201405132

PATIENT
  Age: 74 Year
  Sex: Female

DRUGS (7)
  1. CLEXANE 9ENOXAPARIN SODIUM) [Concomitant]
  2. STILNOX (ZOLPIDEM TARTRATE) [Concomitant]
  3. LEVOFLOXACIN. [Suspect]
     Active Substance: LEVOFLOXACIN
     Indication: BRONCHOPNEUMONIA
     Dosage: 1 IN 1 D
     Route: 041
     Dates: start: 20141028, end: 20141105
  4. LASIX [Concomitant]
     Active Substance: FUROSEMIDE
  5. SPIRIVA (TIOTROPIUM BROMIDE) [Concomitant]
  6. KCL RETARD (POTASSIUM CHLORIDE) [Concomitant]
  7. SEROQUEL [Concomitant]
     Active Substance: QUETIAPINE FUMARATE

REACTIONS (1)
  - Epilepsy [None]

NARRATIVE: CASE EVENT DATE: 20141106
